FAERS Safety Report 25763915 (Version 1)
Quarter: 2025Q3

REPORT INFORMATION
  Report Type: Spontaneous
  Country: US (occurrence: US)
  Receive Date: 20250905
  Receipt Date: 20250905
  Transmission Date: 20251021
  Serious: No
  Sender: DOMPE FARMACEUTICI
  Company Number: US-FARMAPROD-202411-3907

PATIENT
  Sex: Female

DRUGS (15)
  1. OXERVATE [Suspect]
     Active Substance: CENEGERMIN-BKBJ
     Indication: Neurotrophic keratopathy
     Route: 047
     Dates: start: 20241028
  2. POLYMYXIN B SUL-TRIMETHOPRIM [Concomitant]
  3. PRED FORTE [Concomitant]
     Active Substance: PREDNISOLONE ACETATE
  4. HERBALS\SAW PALMETTO [Concomitant]
     Active Substance: HERBALS\SAW PALMETTO
  5. BIOTIN [Concomitant]
     Active Substance: BIOTIN
  6. DIETARY SUPPLEMENT [Concomitant]
     Active Substance: DIETARY SUPPLEMENT
  7. HERBALS\TURMERIC [Concomitant]
     Active Substance: HERBALS\TURMERIC
  8. NIACIN [Concomitant]
     Active Substance: NIACIN
  9. CHONDROITIN SULFATE (BOVINE)\GLUCOSAMINE SULFATE [Concomitant]
     Active Substance: CHONDROITIN SULFATE (BOVINE)\GLUCOSAMINE SULFATE
  10. OCUVITE ADULT 50 PLUS [Concomitant]
  11. VITAMINS [Concomitant]
     Active Substance: VITAMINS
  12. CHLOROPHYLL [Concomitant]
  13. ASPIRIN [Concomitant]
     Active Substance: ASPIRIN
  14. COENZYME Q10 [Concomitant]
     Active Substance: DIETARY SUPPLEMENT\UBIDECARENONE
  15. EZETIMIBE [Concomitant]
     Active Substance: EZETIMIBE

REACTIONS (1)
  - Weight loss poor [Unknown]
